FAERS Safety Report 9345930 (Version 2)
Quarter: 2013Q3

REPORT INFORMATION
  Report Type: Spontaneous
  Country: US (occurrence: US)
  Receive Date: 20130613
  Receipt Date: 20130701
  Transmission Date: 20140515
  Serious: No
  Sender: FDA-Public Use
  Company Number: US-BAYER-2013-072678

PATIENT
  Sex: 0

DRUGS (1)
  1. MAGNEVIST [Suspect]
     Dosage: 20 ML, ONCE

REACTIONS (1)
  - Dyspnoea [None]
